FAERS Safety Report 8553227-1 (Version None)
Quarter: 2012Q3

REPORT INFORMATION
  Report Type: 
  Country: None (occurrence: None)
  Receive Date: 20120731
  Receipt Date: 20120721
  Transmission Date: 20120928
  Serious: Yes (Other)
  Sender: FDA-Public Use
  Company Number: US-RB-042959-12

PATIENT
  Sex: Male

DRUGS (1)
  1. DELSYM [Suspect]
     Indication: DRUG ABUSE
     Route: 048

REACTIONS (2)
  - DRUG ABUSE [None]
  - NO ADVERSE EVENT [None]
